FAERS Safety Report 18007455 (Version 1)
Quarter: 2020Q3

REPORT INFORMATION
  Report Type: Spontaneous
  Country: US (occurrence: US)
  Receive Date: 20200710
  Receipt Date: 20200710
  Transmission Date: 20201103
  Serious: Yes (Hospitalization)
  Sender: FDA-Public Use
  Company Number: US-AMGEN-USASP2020109416

PATIENT
  Age: 82 Year
  Sex: Female

DRUGS (1)
  1. PROLIA [Suspect]
     Active Substance: DENOSUMAB
     Indication: OSTEOPOROSIS
     Dosage: UNK
     Route: 065

REACTIONS (7)
  - Diarrhoea [Unknown]
  - Blood pressure increased [Unknown]
  - Influenza [Unknown]
  - Tooth disorder [Unknown]
  - Vomiting [Unknown]
  - Body temperature increased [Unknown]
  - Pain [Unknown]

NARRATIVE: CASE EVENT DATE: 2020
